FAERS Safety Report 8099741-7 (Version None)
Quarter: 2012Q1

REPORT INFORMATION
  Report Type: 
  Country: None (occurrence: None)
  Receive Date: 20120129
  Receipt Date: 20110920
  Transmission Date: 20120608
  Serious: Yes (Other)
  Sender: FDA-Public Use
  Company Number: US-ABBOTT-11P-163-0855476-00

PATIENT
  Age: 40 Year
  Sex: Female

DRUGS (2)
  1. OTHER UNKNOWN MEDICATIONS [Concomitant]
     Indication: PRODUCT USED FOR UNKNOWN INDICATION
  2. HUMIRA [Suspect]
     Indication: CROHN'S DISEASE
     Dates: start: 20100801

REACTIONS (8)
  - CROHN'S DISEASE [None]
  - PYREXIA [None]
  - NAUSEA [None]
  - DEHYDRATION [None]
  - ABDOMINAL PAIN [None]
  - DIARRHOEA [None]
  - INJECTION SITE HAEMATOMA [None]
  - HEADACHE [None]
